FAERS Safety Report 8473103-2 (Version None)
Quarter: 2012Q2

REPORT INFORMATION
  Report Type: 
  Country: None (occurrence: None)
  Receive Date: 20120627
  Receipt Date: 20120620
  Transmission Date: 20120825
  Serious: Yes (Other)
  Sender: FDA-Public Use
  Company Number: FR-ROCHE-1064538

PATIENT
  Sex: Male
  Weight: 57 kg

DRUGS (4)
  1. ACTEMRA [Suspect]
     Route: 042
     Dates: start: 20120511
  2. ACTEMRA [Suspect]
     Route: 042
     Dates: start: 20120607
  3. ACTEMRA [Suspect]
     Indication: RHEUMATOID ARTHRITIS
     Route: 042
     Dates: start: 20120412
  4. METHOTREXATE [Concomitant]
     Indication: PRODUCT USED FOR UNKNOWN INDICATION

REACTIONS (2)
  - INFECTION [None]
  - LUNG DISORDER [None]
